FAERS Safety Report 21134908 (Version 1)
Quarter: 2022Q3

REPORT INFORMATION
  Report Type: Spontaneous
  Country: US (occurrence: US)
  Receive Date: 20220727
  Receipt Date: 20220727
  Transmission Date: 20221026
  Serious: Yes (Other)
  Sender: FDA-Public Use
  Company Number: US-CELLTRION INC.-2022US011808

PATIENT

DRUGS (1)
  1. RITUXIMAB [Suspect]
     Active Substance: RITUXIMAB
     Indication: Encephalopathy
     Dosage: 1000 MG, GIVEN ONCE
     Dates: start: 20220701

REACTIONS (2)
  - Encephalopathy [Unknown]
  - Off label use [Unknown]
